FAERS Safety Report 20595876 (Version 2)
Quarter: 2022Q1

REPORT INFORMATION
  Report Type: Report from Study
  Country: DE (occurrence: DE)
  Receive Date: 20220315
  Receipt Date: 20220329
  Transmission Date: 20220423
  Serious: Yes (Other)
  Sender: FDA-Public Use
  Company Number: DE-SUN PHARMACEUTICAL INDUSTRIES LTD-2022RR-325118

PATIENT
  Age: 85 Year
  Sex: Female
  Weight: 75 kg

DRUGS (7)
  1. TORSEMIDE [Suspect]
     Active Substance: TORSEMIDE
     Indication: Concomitant disease progression
     Dosage: 10 MILLIGRAM, QD
     Route: 048
  2. SONIDEGIB [Suspect]
     Active Substance: SONIDEGIB
     Indication: Basal cell carcinoma
     Dosage: 200 MILLIGRAM, QD
     Route: 048
     Dates: start: 20211028, end: 20211213
  3. METFORMIN\SITAGLIPTIN [Concomitant]
     Active Substance: METFORMIN\SITAGLIPTIN
     Indication: Concomitant disease progression
     Dosage: 50 MILLIGRAM, BID
     Route: 048
  4. LISINOPRIL [Concomitant]
     Active Substance: LISINOPRIL
     Indication: Concomitant disease progression
     Dosage: 20 MILLIGRAM, QD
     Route: 048
  5. LISINOPRIL [Concomitant]
     Active Substance: LISINOPRIL
     Indication: Concomitant disease progression
     Dosage: 20 MILLIGRAM, QD
     Route: 048
  6. NITRENDIPINE [Concomitant]
     Active Substance: NITRENDIPINE
     Indication: Concomitant disease progression
     Dosage: 20 MILLIGRAM, BID
     Route: 048
  7. METOPROLOL [Concomitant]
     Active Substance: METOPROLOL
     Indication: Concomitant disease progression
     Dosage: 200 MILLIGRAM, QD
     Route: 048

REACTIONS (1)
  - Acute kidney injury [Not Recovered/Not Resolved]

NARRATIVE: CASE EVENT DATE: 20211213
